FAERS Safety Report 9536701 (Version 1)
Quarter: 2013Q3

REPORT INFORMATION
  Report Type: Spontaneous
  Country: US (occurrence: US)
  Receive Date: 20130919
  Receipt Date: 20130919
  Transmission Date: 20140515
  Serious: Yes (Life-Threatening, Hospitalization, Other)
  Sender: FDA-Public Use
  Company Number: US-JNJFOC-20130908822

PATIENT
  Age: 28 Year
  Sex: Male

DRUGS (3)
  1. ACETAMINOPHEN [Suspect]
     Route: 048
  2. ACETAMINOPHEN [Suspect]
     Indication: PRODUCT USED FOR UNKNOWN INDICATION
     Dosage: LETHAL DOSE
     Route: 048
  3. IBUPROFEN [Suspect]
     Indication: PRODUCT USED FOR UNKNOWN INDICATION
     Route: 048

REACTIONS (6)
  - Intentional overdose [Unknown]
  - Rhabdomyolysis [Unknown]
  - Gastrointestinal necrosis [Unknown]
  - Blood creatine phosphokinase increased [Unknown]
  - Acute hepatic failure [Unknown]
  - Renal failure acute [Unknown]
